FAERS Safety Report 12441814 (Version 2)
Quarter: 2016Q2

REPORT INFORMATION
  Report Type: Spontaneous
  Country: US (occurrence: US)
  Receive Date: 20160607
  Receipt Date: 20160615
  Transmission Date: 20160815
  Serious: Yes (Hospitalization)
  Sender: FDA-Public Use
  Company Number: US-JNJCP-30000338907

PATIENT
  Age: 85 Year
  Sex: Female
  Weight: 61 kg

DRUGS (5)
  1. JOHNSONS BABY POWDER [Suspect]
     Active Substance: TALC
     Indication: SKIN ODOUR ABNORMAL
     Dosage: AS NEEDED ON HER BUTT, GROIN, AND UNDER BREASTS AFTER SHOWERING
     Route: 061
  2. JOHNSONS BABY PURE CORNSTARCH MEDICATED [Suspect]
     Active Substance: ZINC OXIDE
     Indication: SKIN ODOUR ABNORMAL
     Dosage: AS NEEDED ON HER BUTT, GROIN, AND UNDER BREASTS AFTER SHOWERING
     Route: 061
  3. ADVIL [Concomitant]
     Active Substance: IBUPROFEN
     Indication: PAIN
  4. JOHNSONS BABY POWDER [Suspect]
     Active Substance: TALC
     Indication: SKIN ODOUR ABNORMAL
     Dosage: AS NEEDED ON HER BUTT, GROIN, AND UNDER BREASTS AFTER SHOWERING
     Route: 061
  5. VITAMINS [Concomitant]
     Active Substance: VITAMINS
     Indication: ROUTINE HEALTH MAINTENANCE

REACTIONS (1)
  - Ovarian cancer [Not Recovered/Not Resolved]

NARRATIVE: CASE EVENT DATE: 201508
